FAERS Safety Report 17962134 (Version 1)
Quarter: 2020Q2

REPORT INFORMATION
  Report Type: Spontaneous
  Country: US (occurrence: US)
  Receive Date: 20200629
  Receipt Date: 20200629
  Transmission Date: 20200714
  Serious: Yes (Disabling)
  Sender: FDA-Public Use
  Company Number: None

PATIENT
  Age: 25 Year
  Sex: Female
  Weight: 76.5 kg

DRUGS (8)
  1. AMITRYPTALINE [Concomitant]
     Active Substance: AMITRIPTYLINE
  2. D MANNOSE [Concomitant]
  3. BUSPIRONE [Concomitant]
     Active Substance: BUSPIRONE HYDROCHLORIDE
  4. NEXPLANON [Suspect]
     Active Substance: ETONOGESTREL
     Indication: CONTRACEPTION
     Dates: start: 20140512, end: 20150220
  5. BACLOFEN. [Concomitant]
     Active Substance: BACLOFEN
  6. VITAMIN B12 [Concomitant]
     Active Substance: CYANOCOBALAMIN
  7. NEXPLANON [Suspect]
     Active Substance: ETONOGESTREL
     Indication: POLYCYSTIC OVARIES
     Dates: start: 20140512, end: 20150220
  8. KLONOPIN [Concomitant]
     Active Substance: CLONAZEPAM

REACTIONS (7)
  - Alopecia [None]
  - Weight increased [None]
  - Paranoia [None]
  - Vaginal haemorrhage [None]
  - Anaemia [None]
  - Hallucination [None]
  - Hallucination, auditory [None]

NARRATIVE: CASE EVENT DATE: 20140715
